FAERS Safety Report 10465091 (Version 1)
Quarter: 2014Q3

REPORT INFORMATION
  Report Type: Spontaneous
  Country: US (occurrence: US)
  Receive Date: 20140919
  Receipt Date: 20140919
  Transmission Date: 20150326
  Serious: Yes (Other)
  Sender: FDA-Public Use
  Company Number: CHPA2014US012280

PATIENT
  Age: 53 Year
  Sex: Male

DRUGS (2)
  1. EXCEDRIN EXTRA STRENGTH [Suspect]
     Active Substance: ACETAMINOPHEN\ASPIRIN\CAFFEINE
     Indication: OFF LABEL USE
  2. EXCEDRIN EXTRA STRENGTH [Suspect]
     Active Substance: ACETAMINOPHEN\ASPIRIN\CAFFEINE
     Indication: PAIN

REACTIONS (7)
  - Muscular weakness [Unknown]
  - Extradural haematoma [Unknown]
  - Paraparesis [Unknown]
  - Abdominal discomfort [Unknown]
  - Spinal cord compression [Unknown]
  - Paralysis [Unknown]
  - Back pain [Unknown]
